FAERS Safety Report 4433793-8 (Version None)
Quarter: 2004Q3

REPORT INFORMATION
  Report Type: 
  Country: None (occurrence: None)
  Receive Date: 20040824
  Receipt Date: 20040812
  Transmission Date: 20050211
  Serious: Yes (Other)
  Sender: FDA-Public Use
  Company Number: US-JNJFOC-20040804713

PATIENT
  Sex: 0

DRUGS (3)
  1. REMICADE [Suspect]
     Indication: CROHN'S DISEASE
     Dosage: ^RECEIVED SEVERAL YEARS AGO^
  2. STEROID (CORTICOSTEROID NOS) [Concomitant]
  3. AZATHIOPRINE [Concomitant]

REACTIONS (1)
  - LYMPHOMA [None]
